FAERS Safety Report 6244306-2 (Version None)
Quarter: 2009Q2

REPORT INFORMATION
  Report Type: 
  Country: None (occurrence: None)
  Receive Date: 20090625
  Receipt Date: 20090617
  Transmission Date: 20091009
  Serious: Yes (Hospitalization)
  Sender: FDA-Public Use
  Company Number: GB-ASTRAZENECA-2009SE02980

PATIENT
  Age: 82 Year
  Sex: Male
  Weight: 82 kg

DRUGS (5)
  1. BETALOC ZOK [Suspect]
     Indication: CORONARY ARTERY DISEASE
     Route: 048
     Dates: start: 20090213, end: 20090330
  2. BETALOC ZOK [Suspect]
     Route: 048
     Dates: start: 20090331
  3. PROLEKOFEN [Suspect]
     Indication: ATRIAL FIBRILLATION
     Route: 048
     Dates: start: 20090212, end: 20090403
  4. ALISKIREN VS PLACEBO [Concomitant]
     Indication: ACUTE CORONARY SYNDROME
     Dates: start: 20090210
  5. VALSARTAN [Concomitant]
     Indication: ACUTE CORONARY SYNDROME
     Route: 048
     Dates: start: 20090210

REACTIONS (5)
  - ATRIAL FIBRILLATION [None]
  - DISEASE PROGRESSION [None]
  - DIZZINESS [None]
  - HEART RATE DECREASED [None]
  - HYPERTENSION [None]
